FAERS Safety Report 24316063 (Version 1)
Quarter: 2024Q3

REPORT INFORMATION
  Report Type: Spontaneous
  Country: GR (occurrence: GR)
  Receive Date: 20240913
  Receipt Date: 20240913
  Transmission Date: 20241016
  Serious: Yes (Hospitalization, Other)
  Sender: Carnegie Pharmaceuticals
  Company Number: GR-CARNEGIE-000044

PATIENT
  Age: 63 Year
  Sex: Female

DRUGS (14)
  1. PALBOCICLIB [Suspect]
     Active Substance: PALBOCICLIB
     Indication: Lymphangiosis carcinomatosa
     Dosage: PALBOCICLIB 100 MG INSTEAD OF 125 MG 1-21 EACH 28-DAY CYCLE
     Route: 048
  2. PALBOCICLIB [Suspect]
     Active Substance: PALBOCICLIB
     Indication: Metastases to bone
     Dosage: PALBOCICLIB 100 MG INSTEAD OF 125 MG 1-21 EACH 28-DAY CYCLE
     Route: 048
  3. BISOPROLOL [Concomitant]
     Active Substance: BISOPROLOL\BISOPROLOL FUMARATE
     Indication: Product used for unknown indication
     Route: 065
  4. PROPRANOLOL [Concomitant]
     Active Substance: PROPRANOLOL HYDROCHLORIDE
     Indication: Ventricular extrasystoles
     Route: 048
  5. ASPIRIN [Concomitant]
     Active Substance: ASPIRIN
     Indication: Product used for unknown indication
     Route: 065
  6. RAMIPRIL [Concomitant]
     Active Substance: RAMIPRIL
     Indication: Product used for unknown indication
     Route: 065
  7. FUROSEMIDE [Concomitant]
     Active Substance: FUROSEMIDE
     Indication: Product used for unknown indication
     Route: 065
  8. EPLERENONE [Concomitant]
     Active Substance: EPLERENONE
     Indication: Product used for unknown indication
     Route: 065
  9. ATORVASTATIN [Concomitant]
     Active Substance: ATORVASTATIN
     Indication: Product used for unknown indication
     Route: 065
  10. ESOMEPRAZOLE [Concomitant]
     Active Substance: ESOMEPRAZOLE
     Indication: Product used for unknown indication
     Route: 065
  11. LETROZOLE [Suspect]
     Active Substance: LETROZOLE
     Indication: Metastases to bone
     Route: 065
  12. LETROZOLE [Suspect]
     Active Substance: LETROZOLE
     Indication: Metastases to bone
     Route: 065
  13. LETROZOLE [Suspect]
     Active Substance: LETROZOLE
     Indication: Lymphangiosis carcinomatosa
     Route: 065
  14. LETROZOLE [Suspect]
     Active Substance: LETROZOLE
     Indication: Lymphangiosis carcinomatosa
     Route: 065

REACTIONS (5)
  - Stress cardiomyopathy [Unknown]
  - Neutropenia [Unknown]
  - Therapy partial responder [Unknown]
  - Nausea [Unknown]
  - Alopecia [Unknown]
